FAERS Safety Report 13432351 (Version 1)
Quarter: 2017Q2

REPORT INFORMATION
  Report Type: Spontaneous
  Country: US (occurrence: US)
  Receive Date: 20170412
  Receipt Date: 20170412
  Transmission Date: 20170830
  Serious: No
  Sender: FDA-Public Use
  Company Number: US-JNJFOC-20170330006

PATIENT
  Age: 70 Year
  Sex: Male

DRUGS (3)
  1. CLEOCIN T [Concomitant]
     Active Substance: CLINDAMYCIN PHOSPHATE
     Route: 065
  2. POTASSIUM [Concomitant]
     Active Substance: POTASSIUM
     Route: 065
  3. XARELTO [Suspect]
     Active Substance: RIVAROXABAN
     Indication: DEEP VEIN THROMBOSIS
     Route: 048
     Dates: start: 20170322

REACTIONS (2)
  - Gait disturbance [Not Recovered/Not Resolved]
  - Paraesthesia [Not Recovered/Not Resolved]

NARRATIVE: CASE EVENT DATE: 201703
